FAERS Safety Report 20608578 (Version 1)
Quarter: 2022Q1

REPORT INFORMATION
  Report Type: Spontaneous
  Country: GB (occurrence: GB)
  Receive Date: 20220317
  Receipt Date: 20220317
  Transmission Date: 20220423
  Serious: Yes (Hospitalization, Congenital Anomaly)
  Sender: FDA-Public Use
  Company Number: GB-ABBVIE-22K-167-4319196-00

PATIENT
  Sex: Male

DRUGS (12)
  1. VALPROIC ACID [Suspect]
     Active Substance: VALPROIC ACID
     Indication: Maternal exposure timing unspecified
     Route: 064
  2. OMEPRAZOLE [Suspect]
     Active Substance: OMEPRAZOLE
     Indication: Maternal exposure timing unspecified
     Route: 064
  3. FLUOXETINE [Suspect]
     Active Substance: FLUOXETINE HYDROCHLORIDE
     Indication: Maternal exposure timing unspecified
     Route: 064
  4. ZOLPIDEM [Concomitant]
     Active Substance: ZOLPIDEM TARTRATE
     Indication: Maternal exposure timing unspecified
  5. HALOPERIDOL [Concomitant]
     Active Substance: HALOPERIDOL
     Indication: Maternal exposure timing unspecified
  6. IBUPROFEN [Concomitant]
     Active Substance: IBUPROFEN
     Indication: Maternal exposure timing unspecified
  7. OLANZAPINE [Concomitant]
     Active Substance: OLANZAPINE
     Indication: Maternal exposure timing unspecified
  8. ACETAMINOPHEN [Concomitant]
     Active Substance: ACETAMINOPHEN
     Indication: Maternal exposure timing unspecified
  9. PROCYCLIDINE [Concomitant]
     Active Substance: PROCYCLIDINE
     Indication: Maternal exposure timing unspecified
  10. VITAMINS [Concomitant]
     Active Substance: VITAMINS
     Indication: Maternal exposure timing unspecified
  11. MELATONIN [Concomitant]
     Active Substance: MELATONIN
     Indication: Maternal exposure timing unspecified
  12. CLONAZEPAM [Concomitant]
     Active Substance: CLONAZEPAM
     Indication: Maternal exposure timing unspecified

REACTIONS (2)
  - Hyponatraemia [Recovered/Resolved]
  - Foetal exposure during pregnancy [Unknown]

NARRATIVE: CASE EVENT DATE: 20200318
